FAERS Safety Report 4843018-7 (Version None)
Quarter: 2005Q4

REPORT INFORMATION
  Report Type: 
  Country: None (occurrence: None)
  Receive Date: 20051201
  Receipt Date: 20051122
  Transmission Date: 20060501
  Serious: Yes (Other)
  Sender: FDA-Public Use
  Company Number: JP-ROCHE-426183

PATIENT
  Age: 5 Year

DRUGS (1)
  1. ROCEPHIN [Suspect]
     Indication: DRUG USE FOR UNKNOWN INDICATION
     Route: 041

REACTIONS (3)
  - PYURIA [None]
  - RENAL DISORDER [None]
  - URINARY TRACT INFECTION [None]
